FAERS Safety Report 13116860 (Version 3)
Quarter: 2017Q1

REPORT INFORMATION
  Report Type: Spontaneous
  Country: US (occurrence: US)
  Receive Date: 20170116
  Receipt Date: 20170322
  Transmission Date: 20170428
  Serious: No
  Sender: FDA-Public Use
  Company Number: US-PFIZER INC-2016592844

PATIENT
  Age: 34 Year
  Sex: Male

DRUGS (7)
  1. IBRANCE [Suspect]
     Active Substance: PALBOCICLIB
     Indication: BREAST CANCER METASTATIC
     Dosage: 125 MG, CYCLIC (ONE CAPSULE DAILY WITH FOOD FOR 21 DAYSON, 7 DAYS OFF/ )
     Route: 048
     Dates: start: 20161221
  2. IBRANCE [Suspect]
     Active Substance: PALBOCICLIB
     Dosage: 125 MG, CYCLIC (1 CAPSULE BY MOUTH EVERYDAY WITH FOOD FOR 21 DAYS ON, OFF ONE WEEK THEN REPEAT)
     Route: 048
  3. LETROZOLE. [Concomitant]
     Active Substance: LETROZOLE
     Dosage: 2.5 MG, DAILY
  4. XGEVA [Concomitant]
     Active Substance: DENOSUMAB
     Dosage: UNK
  5. ACETAMINOPHEN W/HYDROCODONE [Concomitant]
     Active Substance: ACETAMINOPHEN\HYDROCODONE
     Dosage: UNK
  6. VITAMIN B12 [Concomitant]
     Active Substance: CYANOCOBALAMIN
     Dosage: UNK
  7. CALCIUM [Concomitant]
     Active Substance: CALCIUM
     Dosage: UNK

REACTIONS (14)
  - Dyspepsia [Unknown]
  - Abdominal pain [Not Recovered/Not Resolved]
  - Constipation [Unknown]
  - Fatigue [Unknown]
  - Hypoaesthesia [Unknown]
  - Pain in extremity [Unknown]
  - Abdominal pain upper [Unknown]
  - Product use issue [Unknown]
  - Hepatic pain [Unknown]
  - Neuropathy peripheral [Unknown]
  - Back pain [Not Recovered/Not Resolved]
  - Depression [Unknown]
  - Chest discomfort [Unknown]
  - Hordeolum [Unknown]

NARRATIVE: CASE EVENT DATE: 20161221
